FAERS Safety Report 6696283-8 (Version None)
Quarter: 2010Q2

REPORT INFORMATION
  Report Type: 
  Country: None (occurrence: None)
  Receive Date: 20100426
  Receipt Date: 20100421
  Transmission Date: 20101027
  Serious: Yes (Other)
  Sender: FDA-Public Use
  Company Number: JP-SANOFI-AVENTIS-2010SA018106

PATIENT

DRUGS (3)
  1. AMARYL [Suspect]
  2. ACTOS [Suspect]
  3. TAKEPRON [Suspect]

REACTIONS (1)
  - THROMBOCYTOPENIC PURPURA [None]
